FAERS Safety Report 20894595 (Version 4)
Quarter: 2023Q1

REPORT INFORMATION
  Report Type: Spontaneous
  Country: US (occurrence: US)
  Receive Date: 20220531
  Receipt Date: 20230202
  Transmission Date: 20230418
  Serious: No
  Sender: FDA-Public Use
  Company Number: US-009507513-2205USA001788

PATIENT
  Sex: Female

DRUGS (3)
  1. TICE BCG [Suspect]
     Active Substance: BACILLUS CALMETTE-GUERIN SUBSTRAIN TICE LIVE ANTIGEN
     Indication: Bladder cancer
     Dosage: UNK
     Route: 043
     Dates: start: 20220505
  2. TICE BCG [Suspect]
     Active Substance: BACILLUS CALMETTE-GUERIN SUBSTRAIN TICE LIVE ANTIGEN
     Dosage: 50 MG ONCE A WEEK FOR 3 WEEKS
     Route: 043
     Dates: start: 20220927, end: 20220927
  3. TICE BCG [Suspect]
     Active Substance: BACILLUS CALMETTE-GUERIN SUBSTRAIN TICE LIVE ANTIGEN
     Dosage: UNK
     Dates: start: 20230119, end: 20230119

REACTIONS (8)
  - Bladder spasm [Unknown]
  - Bladder catheterisation [Unknown]
  - Exposure via skin contact [Unknown]
  - Product preparation issue [Unknown]
  - Incorrect product administration duration [Unknown]
  - Incorrect dose administered [Unknown]
  - Device leakage [Unknown]
  - Fear [Unknown]

NARRATIVE: CASE EVENT DATE: 20220927
